FAERS Safety Report 5789137-2 (Version None)
Quarter: 2008Q2

REPORT INFORMATION
  Report Type: 
  Country: None (occurrence: None)
  Receive Date: 20080626
  Receipt Date: 20080616
  Transmission Date: 20081010
  Serious: Yes (Other)
  Sender: FDA-Public Use
  Company Number: DK-JNJFOC-20080603902

PATIENT
  Sex: Female

DRUGS (2)
  1. NIZORAL [Suspect]
     Route: 061
  2. NIZORAL [Suspect]
     Indication: ECZEMA
     Route: 061

REACTIONS (2)
  - ROSACEA [None]
  - SKIN IRRITATION [None]
